FAERS Safety Report 19874033 (Version 1)
Quarter: 2021Q3

REPORT INFORMATION
  Report Type: Report from Study
  Country: US (occurrence: US)
  Receive Date: 20210923
  Receipt Date: 20210923
  Transmission Date: 20211014
  Serious: Yes (Hospitalization)
  Sender: FDA-Public Use
  Company Number: US-TAKEDA-2021TUS004055

PATIENT
  Age: 2 Year
  Sex: Female

DRUGS (5)
  1. TEDUGLUTIDE [Suspect]
     Active Substance: TEDUGLUTIDE
     Indication: SHORT-BOWEL SYNDROME
     Dosage: 0.64 MILLIGRAM, QD
     Route: 058
     Dates: start: 20201221
  2. TEDUGLUTIDE [Suspect]
     Active Substance: TEDUGLUTIDE
     Indication: SHORT-BOWEL SYNDROME
     Dosage: 0.64 MILLIGRAM, QD
     Route: 058
     Dates: start: 20201221
  3. TEDUGLUTIDE [Suspect]
     Active Substance: TEDUGLUTIDE
     Indication: SHORT-BOWEL SYNDROME
     Dosage: 0.64 MILLIGRAM, QD
     Route: 058
     Dates: start: 20201221
  4. FLUCONAZOLE. [Suspect]
     Active Substance: FLUCONAZOLE
     Indication: PRODUCT USED FOR UNKNOWN INDICATION
     Route: 065
  5. TEDUGLUTIDE [Suspect]
     Active Substance: TEDUGLUTIDE
     Indication: SHORT-BOWEL SYNDROME
     Dosage: 0.64 MILLIGRAM, QD
     Route: 058
     Dates: start: 20201221

REACTIONS (12)
  - Flatulence [Unknown]
  - Onychomadesis [Unknown]
  - Therapy interrupted [Recovered/Resolved]
  - Product distribution issue [Unknown]
  - Viral upper respiratory tract infection [Unknown]
  - Catheter management [Unknown]
  - Vulvovaginal rash [Unknown]
  - Fungal test positive [Unknown]
  - Vomiting [Recovered/Resolved]
  - Product dose omission issue [Unknown]
  - Nail discolouration [Unknown]
  - Frequent bowel movements [Unknown]

NARRATIVE: CASE EVENT DATE: 20201221
